FAERS Safety Report 12717736 (Version 1)
Quarter: 2016Q3

REPORT INFORMATION
  Report Type: Report from Study
  Country: CA (occurrence: CA)
  Receive Date: 20160906
  Receipt Date: 20160906
  Transmission Date: 20161109
  Serious: Yes (Hospitalization, Other)
  Sender: FDA-Public Use
  Company Number: CA-ABBVIE-16K-028-1707933-00

PATIENT
  Age: 72 Year
  Sex: Female

DRUGS (3)
  1. HUMIRA [Suspect]
     Active Substance: ADALIMUMAB
     Indication: COLITIS ULCERATIVE
     Route: 058
     Dates: start: 20150129
  2. HUMIRA [Suspect]
     Active Substance: ADALIMUMAB
     Indication: CROHN^S DISEASE
  3. PREDNISONE. [Concomitant]
     Active Substance: PREDNISONE
     Indication: CONDITION AGGRAVATED
     Dosage: TAPERING DOWN FROM 40 MG
     Route: 048

REACTIONS (8)
  - Condition aggravated [Unknown]
  - Appendicitis perforated [Recovered/Resolved]
  - Adhesion [Unknown]
  - Inflammation [Unknown]
  - Pelvic abscess [Unknown]
  - Abdominal abscess [Recovered/Resolved]
  - Gastrointestinal injury [Unknown]
  - Pyrexia [Unknown]

NARRATIVE: CASE EVENT DATE: 20160805
